FAERS Safety Report 9769445 (Version 1)
Quarter: 2013Q4

REPORT INFORMATION
  Report Type: Spontaneous
  Country: US (occurrence: None)
  Receive Date: 20131217
  Receipt Date: 20131217
  Transmission Date: 20140711
  Serious: Yes (Other)
  Sender: FDA-Public Use
  Company Number: None

PATIENT
  Age: 59 Year
  Sex: Male
  Weight: 83.92 kg

DRUGS (6)
  1. PRAVASTATIN SODIUM [Suspect]
     Indication: BLOOD CHOLESTEROL INCREASED
     Dates: start: 20090812, end: 20120801
  2. HOLY BASIL [Concomitant]
  3. ASPIRIN [Concomitant]
  4. LUNG FORMULA [Concomitant]
  5. VITA DIGEST [Concomitant]
  6. MAHASUDARSHAM [Concomitant]

REACTIONS (1)
  - Respiratory tract infection [None]
